FAERS Safety Report 5380083-5 (Version None)
Quarter: 2007Q3

REPORT INFORMATION
  Report Type: 
  Country: None (occurrence: None)
  Receive Date: 20070706
  Receipt Date: 20070604
  Transmission Date: 20080115
  Serious: No
  Sender: FDA-Public Use
  Company Number: A0648013A

PATIENT
  Age: 57 Year
  Sex: Female
  Weight: 106.4 kg

DRUGS (2)
  1. TYKERB [Suspect]
     Indication: BREAST CANCER
     Dosage: 1250MG PER DAY
     Route: 048
     Dates: start: 20070401, end: 20070401
  2. XELODA [Suspect]
     Indication: BREAST CANCER
     Dosage: 1500MG TWICE PER DAY
     Route: 048
     Dates: start: 20070515, end: 20070528

REACTIONS (3)
  - FATIGUE [None]
  - OEDEMA PERIPHERAL [None]
  - PALMAR-PLANTAR ERYTHRODYSAESTHESIA SYNDROME [None]
